FAERS Safety Report 12282485 (Version 1)
Quarter: 2016Q2

REPORT INFORMATION
  Report Type: Report from Study
  Country: AR (occurrence: AR)
  Receive Date: 20160419
  Receipt Date: 20160419
  Transmission Date: 20160815
  Serious: Yes (Other)
  Sender: FDA-Public Use
  Company Number: PHHY2016AR049620

PATIENT
  Sex: Female

DRUGS (2)
  1. DIOVAN [Suspect]
     Active Substance: VALSARTAN
     Indication: BLOOD PRESSURE ABNORMAL
     Dosage: UNK
     Route: 065
  2. DIOVAN D [Suspect]
     Active Substance: HYDROCHLOROTHIAZIDE\VALSARTAN
     Indication: BLOOD PRESSURE ABNORMAL
     Dosage: 14 YEARS AGO TO 4 YEARS AGO APPROXIMATELY
     Route: 065

REACTIONS (4)
  - Blood pressure decreased [Recovering/Resolving]
  - Movement disorder [Recovering/Resolving]
  - Fall [Recovering/Resolving]
  - Breast cancer [Recovering/Resolving]
